FAERS Safety Report 7916943-8 (Version None)
Quarter: 2011Q4

REPORT INFORMATION
  Report Type: 
  Country: None (occurrence: None)
  Receive Date: 20111116
  Receipt Date: 20111108
  Transmission Date: 20120403
  Serious: Yes (Hospitalization)
  Sender: FDA-Public Use
  Company Number: FR-SANOFI-AVENTIS-2011SA074122

PATIENT
  Age: 84 Year
  Sex: Female

DRUGS (10)
  1. ASPIRIN [Concomitant]
     Dates: start: 20110310
  2. BISOPROLOL [Concomitant]
     Dates: start: 20090101
  3. SPIRIVA [Concomitant]
     Dates: start: 20080101
  4. CALCIDOSE VITAMINE D [Concomitant]
     Dates: start: 20070101
  5. CLOPIDOGREL BISULFATE [Suspect]
     Indication: ACUTE CORONARY SYNDROME
     Dates: start: 20110317, end: 20110719
  6. IRBESARTAN AND HYDROCHLOROTHIAZIDE [Concomitant]
     Dates: start: 20110415
  7. BUDESONIDE W/FORMOTEROL FUMARATE [Concomitant]
     Dates: start: 20080101
  8. ATORVASTATIN CALCIUM [Concomitant]
     Dates: start: 20110310
  9. AMLODIPINE BESYLATE [Concomitant]
     Dates: start: 20110528
  10. NEXIUM [Concomitant]
     Dates: start: 20110310

REACTIONS (4)
  - ANAEMIA [None]
  - GASTROINTESTINAL ANGIODYSPLASIA [None]
  - DYSPNOEA [None]
  - PULMONARY OEDEMA [None]
